FAERS Safety Report 10597819 (Version 2)
Quarter: 2015Q1

REPORT INFORMATION
  Report Type: Report from Study
  Country: US (occurrence: US)
  Receive Date: 20141121
  Receipt Date: 20150105
  Transmission Date: 20150720
  Serious: Yes (Hospitalization, Other)
  Sender: FDA-Public Use
  Company Number: US-CELGENE-USA-2014111608

PATIENT
  Age: 73 Year
  Sex: Male
  Weight: 73.1 kg

DRUGS (2)
  1. REVLIMID [Suspect]
     Active Substance: LENALIDOMIDE
     Indication: PLASMA CELL MYELOMA
     Route: 048
     Dates: start: 20100623
  2. REVLIMID [Suspect]
     Active Substance: LENALIDOMIDE
     Route: 048
     Dates: start: 20141030, end: 20141217

REACTIONS (2)
  - Pyrexia [Not Recovered/Not Resolved]
  - Bladder squamous cell carcinoma stage unspecified [Not Recovered/Not Resolved]

NARRATIVE: CASE EVENT DATE: 20140918
